FAERS Safety Report 5345787-9 (Version None)
Quarter: 2007Q2

REPORT INFORMATION
  Report Type: 
  Country: None (occurrence: None)
  Receive Date: 20070605
  Receipt Date: 20070601
  Transmission Date: 20071010
  Serious: Yes (Hospitalization)
  Sender: FDA-Public Use
  Company Number: JP-ASTRAZENECA-2007SE03145

PATIENT
  Age: 53 Year
  Sex: Male

DRUGS (2)
  1. BLOPRESS TABLETS 8 [Suspect]
     Indication: HYPERTENSION
     Route: 048
     Dates: start: 20070515, end: 20070522
  2. TEGRETOL [Suspect]
     Route: 048
     Dates: start: 20070515

REACTIONS (1)
  - DRUG ERUPTION [None]
